FAERS Safety Report 6816511-5 (Version None)
Quarter: 2010Q3

REPORT INFORMATION
  Report Type: 
  Country: None (occurrence: None)
  Receive Date: 20100706
  Receipt Date: 20090721
  Transmission Date: 20110219
  Serious: Yes (Other)
  Sender: FDA-Public Use
  Company Number: US-ASTRAZENECA-2008UW03572

PATIENT
  Sex: Female

DRUGS (4)
  1. SEROQUEL [Suspect]
     Dosage: 100-150 MG
     Route: 048
     Dates: start: 20060208
  2. CYMBALTA [Concomitant]
     Dates: start: 20060203
  3. CLONAZEPAM [Concomitant]
     Dates: start: 20060208
  4. WELLBUTRIN [Concomitant]
     Route: 048
     Dates: start: 20080501

REACTIONS (2)
  - NEUROPATHY PERIPHERAL [None]
  - TYPE 2 DIABETES MELLITUS [None]
